FAERS Safety Report 10671947 (Version 4)
Quarter: 2015Q1

REPORT INFORMATION
  Report Type: Report from Study
  Country: DE (occurrence: DE)
  Receive Date: 20141223
  Receipt Date: 20150130
  Transmission Date: 20150720
  Serious: Yes (Hospitalization)
  Sender: FDA-Public Use
  Company Number: DE-TEVA-529569USA

PATIENT
  Sex: Male

DRUGS (21)
  1. BENDAMUSTINE HYDROCHLORIDE [Suspect]
     Active Substance: BENDAMUSTINE HYDROCHLORIDE
     Dosage: 143 MG, CYCLE 2, DAY 1 (75 MG/M2)
     Route: 042
     Dates: start: 20140716
  2. DEXAMETHASONE. [Suspect]
     Active Substance: DEXAMETHASONE
     Indication: PRODUCT USED FOR UNKNOWN INDICATION
     Dosage: 20 MG, WEEKLY
     Route: 048
     Dates: start: 20140618, end: 20141120
  3. DEXAMETHASONE. [Suspect]
     Active Substance: DEXAMETHASONE
     Dosage: UNK, UNKNOWN FREQ.
     Route: 065
     Dates: end: 20141203
  4. PEGFILGRASTIM [Suspect]
     Active Substance: PEGFILGRASTIM
     Dosage: UNK UNK, UNKNOWN FREQ.
     Route: 065
     Dates: end: 20141203
  5. BENDAMUSTINE HYDROCHLORIDE [Suspect]
     Active Substance: BENDAMUSTINE HYDROCHLORIDE
     Dosage: 143 MG, CYCLE 3, DAY 2 (75 MG/M2)
     Route: 042
     Dates: start: 20140814
  6. REVLIMID [Suspect]
     Active Substance: LENALIDOMIDE
     Indication: PRODUCT USED FOR UNKNOWN INDICATION
     Dosage: 25 MG, DAILY
     Route: 048
     Dates: start: 20140618, end: 20141125
  7. BENDAMUSTINE HYDROCHLORIDE [Suspect]
     Active Substance: BENDAMUSTINE HYDROCHLORIDE
     Indication: PRODUCT USED FOR UNKNOWN INDICATION
     Dosage: 143 MG, CYCLE 1, DAY 1 (75 MG/M2), DAY 1+2, EVERY 4 WEEKS
     Route: 042
     Dates: start: 20140618
  8. BENDAMUSTINE HYDROCHLORIDE [Suspect]
     Active Substance: BENDAMUSTINE HYDROCHLORIDE
     Dosage: 143 MG, CYCLE 5, DAY 1 (75 MG/M2)
     Route: 042
     Dates: start: 20141008
  9. BENDAMUSTINE HYDROCHLORIDE [Suspect]
     Active Substance: BENDAMUSTINE HYDROCHLORIDE
     Dosage: UNK UNK, UNKNOWN FREQ.
     Route: 065
     Dates: end: 20141203
  10. BENDAMUSTINE HYDROCHLORIDE [Suspect]
     Active Substance: BENDAMUSTINE HYDROCHLORIDE
     Dosage: 143 MG, CYCLE 6, DAY 1 (75 MG/M2)
     Route: 042
     Dates: start: 20141105, end: 20141106
  11. BENDAMUSTINE HYDROCHLORIDE [Suspect]
     Active Substance: BENDAMUSTINE HYDROCHLORIDE
     Dosage: 143 MG, CYCLE 2, DAY 2 (75 MG/M2)
     Route: 042
     Dates: start: 20140717
  12. REVLIMID [Suspect]
     Active Substance: LENALIDOMIDE
     Dosage: UNK, UNKNOWN FREQ.
     Route: 065
     Dates: end: 20141203
  13. CALCIUM [Concomitant]
     Active Substance: CALCIUM
     Indication: OSTEOPOROSIS
     Dosage: UNK UNK, UNKNOWN FREQ.
     Route: 048
     Dates: start: 201003
  14. BENDAMUSTINE HYDROCHLORIDE [Suspect]
     Active Substance: BENDAMUSTINE HYDROCHLORIDE
     Dosage: 143 MG, CYCLE 4, DAY 1 (75 MG/M2)
     Route: 042
     Dates: start: 20140910
  15. NOVAMINSULFON [Concomitant]
     Active Substance: METAMIZOLE
     Indication: PAIN
     Dosage: 40 UNK, 4 TIMES DAILY
     Route: 048
  16. BENDAMUSTINE HYDROCHLORIDE [Suspect]
     Active Substance: BENDAMUSTINE HYDROCHLORIDE
     Dosage: 143 MG, CYCLE 1, DAY 2 (75 MG/M2)
     Route: 042
     Dates: start: 20140619
  17. BENDAMUSTINE HYDROCHLORIDE [Suspect]
     Active Substance: BENDAMUSTINE HYDROCHLORIDE
     Dosage: 143 MG, CYCLE 4, DAY 2 (75 MG/M2)
     Route: 042
     Dates: start: 20140911
  18. BENDAMUSTINE HYDROCHLORIDE [Suspect]
     Active Substance: BENDAMUSTINE HYDROCHLORIDE
     Dosage: 143 MG, CYCLE 5, DAY 2 (75 MG/M2)
     Route: 042
     Dates: start: 20141009
  19. PEGFILGRASTIM [Suspect]
     Active Substance: PEGFILGRASTIM
     Indication: PRODUCT USED FOR UNKNOWN INDICATION
     Route: 058
     Dates: start: 20140718, end: 20141107
  20. BENDAMUSTINE HYDROCHLORIDE [Suspect]
     Active Substance: BENDAMUSTINE HYDROCHLORIDE
     Dosage: 143 MG, CYCLE 3, DAY 1 (75 MG/M2)
     Route: 042
     Dates: start: 20140813
  21. FRAGMIN [Concomitant]
     Active Substance: DALTEPARIN SODIUM
     Indication: THROMBOSIS PROPHYLAXIS
     Dosage: UNK UNK, ONCE DAILY
     Route: 060
     Dates: start: 20140618

REACTIONS (1)
  - Thrombosis [Recovered/Resolved]

NARRATIVE: CASE EVENT DATE: 20141203
